FAERS Safety Report 8875484 (Version 1)
Quarter: 2012Q4

REPORT INFORMATION
  Report Type: Report from Study
  Country: DE (occurrence: JP)
  Receive Date: 20121023
  Receipt Date: 20121023
  Transmission Date: 20130627
  Serious: Yes (Other)
  Sender: FDA-Public Use
  Company Number: JP-BRISTOL-MYERS SQUIBB COMPANY-17038902

PATIENT
  Age: 61 Year
  Sex: Male
  Weight: 61 kg

DRUGS (5)
  1. ERBITUX SOLN FOR INF 5MG/ML [Suspect]
     Indication: COLON CANCER
     Dosage: 15Oct08-15Oct08,Including skipped week 250mg;22Oct08-01Jul09
     Route: 041
     Dates: start: 20081015, end: 20090701
  2. IRINOTECAN HCL [Suspect]
     Indication: COLON CANCER
     Dosage: Including skipped week
     Route: 041
     Dates: start: 20081015, end: 20090701
  3. CHLOR-TRIMETON [Concomitant]
     Indication: PREMEDICATION
     Dosage: Including skipped week
     Route: 042
     Dates: start: 20081015
  4. DEXART [Concomitant]
     Indication: PREMEDICATION
     Dosage: 1DF: 8 Units NOS,Including skipped week
     Route: 042
     Dates: start: 20081015
  5. GRANISETRON [Concomitant]
     Indication: ANTIEMETIC SUPPORTIVE CARE
     Dosage: Including skipped week
     Route: 042
     Dates: start: 20081015

REACTIONS (8)
  - Gastrointestinal haemorrhage [Recovered/Resolved]
  - Dysphonia [Recovered/Resolved]
  - Dermatitis acneiform [Recovered/Resolved]
  - Paronychia [Recovering/Resolving]
  - Nail disorder [Recovered/Resolved]
  - Dry skin [Recovered/Resolved]
  - Hypomagnesaemia [Recovered/Resolved]
  - Epistaxis [Recovered/Resolved]
